FAERS Safety Report 7301257-X (Version None)
Quarter: 2011Q1

REPORT INFORMATION
  Report Type: 
  Country: None (occurrence: None)
  Receive Date: 20110112
  Receipt Date: 20090325
  Transmission Date: 20110831
  Serious: Yes (Life-Threatening)
  Sender: FDA-Public Use
  Company Number: THYM-10000936

PATIENT
  Age: 37 Year
  Sex: Female
  Weight: 59.1 kg

DRUGS (7)
  1. SOLU-MEDROL [Concomitant]
  2. TACROLIMUS [Concomitant]
  3. MYCOPHENOLATE MOFETIL [Concomitant]
  4. PREDNISONIE (PREDNISONE ACETATE) [Concomitant]
  5. THYMOGLOBULIN [Suspect]
     Indication: PROPHYLAXIS
     Dosage: 75 MG, QD, INTRAVENOUS
     Route: 042
     Dates: start: 20080122, end: 20080128
  6. THYMOGLOBULIN [Suspect]
     Indication: PROPHYLAXIS
     Dosage: 75 MG, QD, INTRAVENOUS
     Route: 042
     Dates: start: 20080122, end: 20080128
  7. THYMOGLOBULIN [Suspect]

REACTIONS (3)
  - LYMPHOMA [None]
  - EPSTEIN-BARR VIRUS ASSOCIATED LYMPHOPROLIFERATIVE DISORDER [None]
  - EPSTEIN-BARR VIRUS INFECTION [None]
